FAERS Safety Report 5868966-0 (Version None)
Quarter: 2008Q3

REPORT INFORMATION
  Report Type: 
  Country: None (occurrence: None)
  Receive Date: 20080903
  Receipt Date: 20080822
  Transmission Date: 20090109
  Serious: Yes (Hospitalization)
  Sender: FDA-Public Use
  Company Number: GB-ROCHE-567373

PATIENT
  Sex: Male
  Weight: 51 kg

DRUGS (6)
  1. PEGASYS [Suspect]
     Route: 058
     Dates: start: 20080204, end: 20080606
  2. PEGASYS [Suspect]
     Route: 058
     Dates: end: 20080721
  3. RIBAVIRIN [Suspect]
     Route: 048
     Dates: start: 20080204, end: 20080606
  4. RIBAVIRIN [Suspect]
     Route: 048
     Dates: end: 20080721
  5. VX-950 [Suspect]
     Route: 048
     Dates: start: 20080204
  6. VX-950 [Suspect]
     Route: 048
     Dates: end: 20080721

REACTIONS (6)
  - CLOSTRIDIUM DIFFICILE COLITIS [None]
  - NEUTROPENIA [None]
  - OROPHARYNGEAL PAIN [None]
  - PNEUMONIA [None]
  - PRODUCTIVE COUGH [None]
  - PYREXIA [None]
